FAERS Safety Report 9265903 (Version 1)
Quarter: 2013Q2

REPORT INFORMATION
  Report Type: Spontaneous
  Country: US (occurrence: US)
  Receive Date: 20130501
  Receipt Date: 20130501
  Transmission Date: 20140414
  Serious: No
  Sender: FDA-Public Use
  Company Number: US-TEVA-402230USA

PATIENT
  Age: 22 Year
  Sex: Female
  Weight: 79.9 kg

DRUGS (5)
  1. PLAN B ONE-STEP [Suspect]
     Indication: POST COITAL CONTRACEPTION
     Dosage: 1.5 MILLIGRAM DAILY;
     Route: 048
     Dates: start: 20130404, end: 20130404
  2. ALLEGRA [Concomitant]
     Indication: SEASONAL ALLERGY
     Dates: end: 20130421
  3. IBUPROFEN [Concomitant]
     Indication: SINUS HEADACHE
     Route: 048
  4. FLONASE [Concomitant]
     Indication: RHINITIS ALLERGIC
     Route: 048
     Dates: start: 20130422
  5. ALLEGRA [Concomitant]
     Indication: SEASONAL ALLERGY
     Route: 048
     Dates: start: 20130422

REACTIONS (4)
  - Abdominal distension [Not Recovered/Not Resolved]
  - Menstruation irregular [Recovered/Resolved]
  - Menstruation delayed [Not Recovered/Not Resolved]
  - Pelvic pain [Recovered/Resolved]
